FAERS Safety Report 8492601-9 (Version None)
Quarter: 2012Q3

REPORT INFORMATION
  Report Type: 
  Country: None (occurrence: None)
  Receive Date: 20120706
  Receipt Date: 20120625
  Transmission Date: 20120928
  Serious: Yes (Other)
  Sender: FDA-Public Use
  Company Number: GB-ELI_LILLY_AND_COMPANY-GB201206008177

PATIENT
  Sex: Male

DRUGS (2)
  1. STRATTERA [Suspect]
     Dosage: UNK
  2. STRATTERA [Suspect]
     Dosage: 60 MG

REACTIONS (3)
  - BLOOD POTASSIUM DECREASED [None]
  - MOUTH ULCERATION [None]
  - POLYCYTHAEMIA [None]
